FAERS Safety Report 23930753 (Version 1)
Quarter: 2024Q2

REPORT INFORMATION
  Report Type: Spontaneous
  Country: US (occurrence: US)
  Receive Date: 20240603
  Receipt Date: 20240603
  Transmission Date: 20240716
  Serious: Yes (Death)
  Sender: FDA-Public Use
  Company Number: US-SPECGX-T202401205

PATIENT

DRUGS (1)
  1. ACETAMINOPHEN\HYDROCODONE [Suspect]
     Active Substance: ACETAMINOPHEN\HYDROCODONE
     Indication: Product used for unknown indication
     Dosage: 1 DOSAGE FORM, PRN (10/650 MG, TWICE DAILY)
     Route: 048

REACTIONS (2)
  - Death [Fatal]
  - Injury [Unknown]
